FAERS Safety Report 8805220 (Version 1)
Quarter: 2012Q4

REPORT INFORMATION
  Report Type: Spontaneous
  Country: DK (occurrence: None)
  Receive Date: 20120917
  Receipt Date: 20120917
  Transmission Date: 20130627
  Serious: Yes (Hospitalization)
  Sender: FDA-Public Use
  Company Number: 2012MA011141

PATIENT
  Age: 16 Year
  Sex: Female

DRUGS (2)
  1. FEVERALL [Suspect]
     Indication: INTENTIONAL SELF-INJURY
     Route: 048
     Dates: start: 20120716, end: 20120716
  2. IBUPROFEN [Suspect]
     Indication: INTENTIONAL SELF-INJURY
     Dates: start: 20120716, end: 20120716

REACTIONS (2)
  - Suicide attempt [None]
  - Intentional overdose [None]
